FAERS Safety Report 18462063 (Version 1)
Quarter: 2020Q4

REPORT INFORMATION
  Report Type: Spontaneous
  Country: US (occurrence: US)
  Receive Date: 20201104
  Receipt Date: 20201104
  Transmission Date: 20210114
  Serious: Yes (Other)
  Sender: FDA-Public Use
  Company Number: US-PFIZER INC-2020419124

PATIENT
  Age: 20 Year
  Sex: Female

DRUGS (2)
  1. PROBENECID. [Concomitant]
     Active Substance: PROBENECID
     Indication: GONOCOCCAL INFECTION
     Dosage: 1 G
  2. PROCAINE BENZYLPENICILLIN [Suspect]
     Active Substance: PENICILLIN G PROCAINE
     Indication: GONOCOCCAL INFECTION
     Dosage: 4.8 MIU (2.4 MIU IN EACH BUTTOCK)
     Route: 030

REACTIONS (4)
  - Product use in unapproved indication [Unknown]
  - Off label use [Unknown]
  - Psychotic disorder [Recovered/Resolved]
  - Anaphylactoid reaction [Recovered/Resolved]
